FAERS Safety Report 4990042-X (Version None)
Quarter: 2006Q2

REPORT INFORMATION
  Report Type: 
  Country: None (occurrence: None)
  Receive Date: 20060503
  Receipt Date: 20060309
  Transmission Date: 20061013
  Serious: Yes (Hospitalization, Disabling)
  Sender: FDA-Public Use
  Company Number: NLWYE457309MAR06

PATIENT
  Sex: Female

DRUGS (7)
  1. ENBREL [Suspect]
     Indication: RHEUMATOID ARTHRITIS
     Dosage: UNKNOWN
     Route: 058
     Dates: start: 20051114, end: 20060102
  2. ISONIAZID [Suspect]
     Indication: TUBERCULOSIS
     Route: 065
     Dates: start: 20050906, end: 20060105
  3. PREDNISOLONE [Concomitant]
     Route: 065
     Dates: start: 20010101
  4. COVERSYL [Concomitant]
     Route: 065
     Dates: start: 20030101
  5. PYRIDOXINE HCL [Concomitant]
     Route: 065
     Dates: start: 20050905
  6. RISEDRONATE [Concomitant]
     Route: 065
     Dates: start: 20040101
  7. NORVASC [Concomitant]
     Dates: start: 20050101

REACTIONS (5)
  - BLOOD CREATININE INCREASED [None]
  - BLOOD POTASSIUM DECREASED [None]
  - C-REACTIVE PROTEIN INCREASED [None]
  - INAPPROPRIATE ANTIDIURETIC HORMONE SECRETION [None]
  - PARAPARESIS [None]
